FAERS Safety Report 8346017-6 (Version None)
Quarter: 2012Q2

REPORT INFORMATION
  Report Type: 
  Country: None (occurrence: None)
  Receive Date: 20120509
  Receipt Date: 20120501
  Transmission Date: 20120825
  Serious: No
  Sender: FDA-Public Use
  Company Number: US-PFIZER INC-2012019541

PATIENT
  Age: 35 Year
  Sex: Female

DRUGS (1)
  1. EPIPEN JR. [Suspect]
     Dosage: UNK
     Dates: start: 20120119

REACTIONS (3)
  - ACCIDENTAL EXPOSURE [None]
  - FEELING ABNORMAL [None]
  - FEELING JITTERY [None]
